FAERS Safety Report 23438885 (Version 1)
Quarter: 2024Q1

REPORT INFORMATION
  Report Type: Spontaneous
  Country: AR (occurrence: AR)
  Receive Date: 20240124
  Receipt Date: 20240124
  Transmission Date: 20240410
  Serious: Yes (Life-Threatening, Hospitalization, Other)
  Sender: FDA-Public Use
  Company Number: AR-SANDOZ-SDZ2024AR007302

PATIENT
  Age: 55 Year
  Sex: Female

DRUGS (1)
  1. ERELZI [Suspect]
     Active Substance: ETANERCEPT-SZZS
     Indication: Rheumatoid arthritis
     Dosage: 50 MG 4 TIMES A MONTH
     Route: 058
     Dates: start: 20221204, end: 20240122

REACTIONS (1)
  - Carotid artery occlusion [Recovered/Resolved]

NARRATIVE: CASE EVENT DATE: 20231226
